FAERS Safety Report 6506784-0 (Version None)
Quarter: 2009Q4

REPORT INFORMATION
  Report Type: 
  Country: None (occurrence: None)
  Receive Date: 20091221
  Receipt Date: 20091209
  Transmission Date: 20100525
  Serious: No
  Sender: FDA-Public Use
  Company Number: JP-ROCHE-675417

PATIENT
  Age: 32 Year
  Sex: Female

DRUGS (5)
  1. TAMIFLU [Suspect]
     Indication: INFLUENZA
     Route: 048
     Dates: start: 20091209, end: 20091209
  2. MUCOSTA [Concomitant]
     Route: 048
  3. MUCODYNE [Concomitant]
     Dosage: DOSE FORM: FINE GRANULE
     Route: 048
  4. ASTHMA [Concomitant]
     Route: 048
  5. COCARL [Concomitant]
     Dosage: FREQUENCY: TAKEN AS NEEDED.
     Route: 048

REACTIONS (2)
  - ACCIDENTAL OVERDOSE [None]
  - NO ADVERSE EVENT [None]
